FAERS Safety Report 7188221-9 (Version None)
Quarter: 2010Q4

REPORT INFORMATION
  Report Type: 
  Country: None (occurrence: None)
  Receive Date: 20101222
  Receipt Date: 20101217
  Transmission Date: 20110411
  Serious: Yes (Life-Threatening, Other)
  Sender: FDA-Public Use
  Company Number: US-PFIZER INC-2010175719

PATIENT
  Sex: Male

DRUGS (1)
  1. CHANTIX [Suspect]
     Dosage: UNK
     Dates: start: 20061221

REACTIONS (9)
  - AMNESIA [None]
  - BRAIN INJURY [None]
  - COMA [None]
  - DEPRESSION [None]
  - HYPOXIA [None]
  - INTENTIONAL OVERDOSE [None]
  - MENTAL STATUS CHANGES [None]
  - RESPIRATORY FAILURE [None]
  - SUICIDE ATTEMPT [None]
